FAERS Safety Report 9176863 (Version 2)
Quarter: 2013Q1

REPORT INFORMATION
  Report Type: Report from Study
  Country: CA (occurrence: CA)
  Receive Date: 20130321
  Receipt Date: 20130321
  Transmission Date: 20140127
  Serious: Yes (Hospitalization, Other)
  Sender: FDA-Public Use
  Company Number: PHHO2009CA11059

PATIENT
  Age: 49 Year
  Sex: Female
  Weight: 54 kg

DRUGS (8)
  1. SOM230 [Suspect]
     Indication: CUSHING^S SYNDROME
     Dosage: UNK
     Route: 058
     Dates: start: 20071001
  2. SOM230 [Suspect]
     Dosage: 900 UG, BID
     Route: 058
     Dates: end: 20090903
  3. SOM230 [Suspect]
     Dosage: 600 UG, BID
     Route: 058
     Dates: start: 20090906
  4. METFORMIN [Concomitant]
  5. CALCIUM W/VITAMIN D NOS [Concomitant]
     Dosage: 400 MG, UNK
     Route: 048
  6. VITAMIN C [Concomitant]
     Dosage: UNK
  7. PREDNISONE [Concomitant]
     Dosage: 900 UG, BID
  8. PREDNISONE [Concomitant]
     Dosage: 600 UG, UNK

REACTIONS (9)
  - Hypotension [Recovered/Resolved]
  - Fall [Recovered/Resolved]
  - Loss of consciousness [Recovered/Resolved]
  - Head injury [Recovered/Resolved]
  - Atrioventricular block second degree [Recovering/Resolving]
  - Vertigo positional [Recovering/Resolving]
  - Dizziness [Recovering/Resolving]
  - Pericarditis [Recovering/Resolving]
  - Painful respiration [Recovering/Resolving]
